FAERS Safety Report 24318169 (Version 1)
Quarter: 2024Q3

REPORT INFORMATION
  Report Type: Spontaneous
  Country: FR (occurrence: FR)
  Receive Date: 20240913
  Receipt Date: 20240913
  Transmission Date: 20241017
  Serious: Yes (Hospitalization, Other)
  Sender: AMGEN
  Company Number: None

PATIENT
  Age: 34 Year
  Sex: Female
  Weight: 88 kg

DRUGS (15)
  1. BLINATUMOMAB [Suspect]
     Active Substance: BLINATUMOMAB
     Indication: Acute lymphocytic leukaemia
     Dosage: 1 DOSAGE FORM, CYCLICAL
     Route: 040
     Dates: start: 20240617
  2. BLINATUMOMAB [Suspect]
     Active Substance: BLINATUMOMAB
     Dosage: 1 DOSAGE FORM, CYCLICAL
     Route: 040
     Dates: start: 20240627
  3. BLINATUMOMAB [Suspect]
     Active Substance: BLINATUMOMAB
     Dosage: 1 DOSAGE FORM, CYCLICAL
     Route: 040
     Dates: start: 20240301
  4. BLINATUMOMAB [Suspect]
     Active Substance: BLINATUMOMAB
     Dosage: 1 DOSAGE FORM, CYCLICAL
     Route: 040
     Dates: start: 20240202
  5. VALACYCLOVIR HYDROCHLORIDE [Suspect]
     Active Substance: VALACYCLOVIR HYDROCHLORIDE
     Indication: Antiviral prophylaxis
     Dosage: 1000 MILLIGRAM, QD
     Route: 048
     Dates: start: 20240131
  6. DAUNORUBICIN HYDROCHLORIDE [Suspect]
     Active Substance: DAUNORUBICIN HYDROCHLORIDE
     Indication: Acute lymphocytic leukaemia
     Dosage: 116 MILLIGRAM
     Route: 040
     Dates: start: 20240507, end: 20240509
  7. MERCAPTOPURINE [Suspect]
     Active Substance: MERCAPTOPURINE
     Indication: Acute lymphocytic leukaemia
     Dosage: 121 MILLIGRAM, QD
     Route: 048
     Dates: start: 20240726, end: 20240730
  8. METHOTREXATE [Suspect]
     Active Substance: METHOTREXATE
     Indication: Acute lymphocytic leukaemia
     Dosage: 970 MILLIGRAM
     Route: 040
     Dates: start: 20240418, end: 20240418
  9. METHOTREXATE [Suspect]
     Active Substance: METHOTREXATE
     Dosage: 1010 MILLIGRAM
     Route: 040
     Dates: start: 20240724, end: 20240724
  10. VINCRISTINE SULFATE [Suspect]
     Active Substance: VINCRISTINE SULFATE
     Indication: Acute lymphocytic leukaemia
     Dosage: 2 MILLIGRAM
     Route: 040
     Dates: start: 20240724, end: 20240724
  11. VINCRISTINE SULFATE [Suspect]
     Active Substance: VINCRISTINE SULFATE
     Dosage: 2 MILLIGRAM, QWK
     Route: 040
     Dates: start: 20240507, end: 20240528
  12. VINCRISTINE SULFATE [Suspect]
     Active Substance: VINCRISTINE SULFATE
     Dosage: 2 MILLIGRAM
     Route: 040
     Dates: start: 20240418, end: 20240418
  13. VINCRISTINE SULFATE [Suspect]
     Active Substance: VINCRISTINE SULFATE
     Dosage: 2 MILLIGRAM
     Route: 040
     Dates: start: 20240131, end: 20240131
  14. CYTARABINE [Suspect]
     Active Substance: CYTARABINE
     Indication: Acute lymphocytic leukaemia
     Dosage: 3750 MILLIGRAM, QD
     Route: 040
     Dates: start: 20240320, end: 20240321
  15. CYTARABINE [Suspect]
     Active Substance: CYTARABINE
     Dosage: 3850 MILLIGRAM
     Route: 040
     Dates: start: 20240618, end: 20240618

REACTIONS (2)
  - Neuropathy peripheral [Not Recovered/Not Resolved]
  - Acute motor-sensory axonal neuropathy [Not Recovered/Not Resolved]

NARRATIVE: CASE EVENT DATE: 20240601
